FAERS Safety Report 5781416-8 (Version None)
Quarter: 2008Q2

REPORT INFORMATION
  Report Type: 
  Country: None (occurrence: None)
  Receive Date: 20080623
  Receipt Date: 20071227
  Transmission Date: 20081010
  Serious: No
  Sender: FDA-Public Use
  Company Number: US-ASTRAZENECA-2007UW29040

PATIENT
  Age: 65 Year
  Sex: Male
  Weight: 101.6 kg

DRUGS (13)
  1. ENTOCORT EC [Suspect]
     Indication: CROHN'S DISEASE
     Route: 048
  2. ENTOCORT EC [Suspect]
     Indication: COELIAC DISEASE
     Route: 048
  3. ENTOCORT EC [Suspect]
     Route: 048
  4. ENTOCORT EC [Suspect]
     Route: 048
  5. ENTOCORT EC [Suspect]
     Route: 048
  6. ENTOCORT EC [Suspect]
     Route: 048
  7. FUROSEMIDE [Concomitant]
  8. COZAAR [Concomitant]
  9. CALTRATE D [Concomitant]
  10. MOVE FREE [Concomitant]
  11. CENTRUM GOLD [Concomitant]
  12. FOLIC ACID [Concomitant]
  13. VITAMIN TAB [Concomitant]

REACTIONS (3)
  - ARTHRALGIA [None]
  - OEDEMA PERIPHERAL [None]
  - PAIN IN EXTREMITY [None]
